FAERS Safety Report 13263499 (Version 1)
Quarter: 2017Q1

REPORT INFORMATION
  Report Type: Report from Study
  Country: FR (occurrence: FR)
  Receive Date: 20170223
  Receipt Date: 20170223
  Transmission Date: 20170428
  Serious: Yes (Hospitalization)
  Sender: FDA-Public Use
  Company Number: FR-ROCHE-1893191

PATIENT
  Age: 69 Year
  Sex: Female

DRUGS (17)
  1. RITUXIMAB [Suspect]
     Active Substance: RITUXIMAB
     Route: 041
     Dates: start: 20160711, end: 20160711
  2. NEBILOX [Concomitant]
     Active Substance: NEBIVOLOL HYDROCHLORIDE
  3. FORLAX [Concomitant]
     Active Substance: POLYETHYLENE GLYCOL 4000
  4. RITUXIMAB [Suspect]
     Active Substance: RITUXIMAB
     Indication: VASCULITIS NECROTISING
     Route: 041
     Dates: start: 20160112, end: 20160112
  5. LEVOTHYROX [Concomitant]
     Active Substance: LEVOTHYROXINE
  6. LASILIX RETARD [Concomitant]
     Active Substance: FUROSEMIDE
  7. ATORVASTATINE [Concomitant]
     Active Substance: ATORVASTATIN
  8. PARACETAMOL [Concomitant]
     Active Substance: ACETAMINOPHEN
  9. CALCIDIA [Concomitant]
     Active Substance: CALCIUM POLYCARBOPHIL
  10. VALACICLOVIR [Concomitant]
     Active Substance: VALACYCLOVIR HYDROCHLORIDE
  11. ZELITREX [Concomitant]
     Active Substance: VALACYCLOVIR HYDROCHLORIDE
  12. BACTRIM [Concomitant]
     Active Substance: SULFAMETHOXAZOLE\TRIMETHOPRIM
     Route: 065
  13. SPECIAFOLDINE [Concomitant]
     Active Substance: FOLIC ACID
  14. DEDROGYL [Concomitant]
     Active Substance: CALCIFEDIOL
  15. PERINDOPRIL [Concomitant]
     Active Substance: PERINDOPRIL
  16. OMEPRAZOLE. [Concomitant]
     Active Substance: OMEPRAZOLE
  17. PARACETAMOL CODEINE [Concomitant]
     Active Substance: ACETAMINOPHEN\CODEINE PHOSPHATE

REACTIONS (2)
  - Sepsis [Not Recovered/Not Resolved]
  - Pulmonary embolism [Not Recovered/Not Resolved]

NARRATIVE: CASE EVENT DATE: 20161217
